FAERS Safety Report 6830559-6 (Version None)
Quarter: 2010Q3

REPORT INFORMATION
  Report Type: 
  Country: None (occurrence: None)
  Receive Date: 20100712
  Receipt Date: 20100630
  Transmission Date: 20110219
  Serious: Yes (Hospitalization)
  Sender: FDA-Public Use
  Company Number: JP-JNJFOC-20100701314

PATIENT
  Sex: Female
  Weight: 48 kg

DRUGS (10)
  1. REMICADE [Suspect]
     Indication: CROHN'S DISEASE
     Dosage: 4 DOSES ADMINISTERED ON UNKNOWN DATES
     Route: 042
  2. REMICADE [Suspect]
     Route: 042
  3. PREDNISOLONE [Concomitant]
     Indication: SYSTEMIC LUPUS ERYTHEMATOSUS
     Route: 048
  4. PLATIBIT [Concomitant]
     Indication: OSTEOPOROSIS
     Route: 048
  5. MUCOSTA [Concomitant]
     Indication: GASTRITIS
     Route: 048
  6. PENTASA [Concomitant]
     Indication: CROHN'S DISEASE
     Route: 048
  7. MIYA BM [Concomitant]
     Indication: CROHN'S DISEASE
     Route: 048
  8. PARIET [Concomitant]
     Indication: REFLUX OESOPHAGITIS
     Route: 048
  9. CHLOR-TRIMETON [Concomitant]
     Indication: PREMEDICATION
  10. SOLU-CORTEF [Concomitant]
     Indication: PREMEDICATION

REACTIONS (1)
  - BACK PAIN [None]
